FAERS Safety Report 13239582 (Version 4)
Quarter: 2018Q1

REPORT INFORMATION
  Report Type: Spontaneous
  Country: US (occurrence: US)
  Receive Date: 20170216
  Receipt Date: 20180212
  Transmission Date: 20180508
  Serious: Yes (Other)
  Sender: FDA-Public Use
  Company Number: US-ALEXION PHARMACEUTICALS INC-A201701269

PATIENT
  Age: 18 Year
  Sex: Female

DRUGS (4)
  1. SOLIRIS [Suspect]
     Active Substance: ECULIZUMAB
     Dosage: 900 MG, UNK
     Route: 042
     Dates: start: 2008
  2. VITAMIN D                          /00107901/ [Concomitant]
     Active Substance: ERGOCALCIFEROL
     Indication: PRODUCT USED FOR UNKNOWN INDICATION
     Dosage: UNK
     Route: 065
     Dates: start: 20100101
  3. FOLIC ACID. [Concomitant]
     Active Substance: FOLIC ACID
     Indication: PRODUCT USED FOR UNKNOWN INDICATION
     Dosage: UNK
     Route: 065
     Dates: start: 20100101
  4. SOLIRIS [Suspect]
     Active Substance: ECULIZUMAB
     Indication: PAROXYSMAL NOCTURNAL HAEMOGLOBINURIA
     Dosage: 600 MG, UNK
     Route: 042
     Dates: start: 20080101

REACTIONS (24)
  - Influenza [Recovered/Resolved]
  - Laboratory test abnormal [Unknown]
  - Blood bicarbonate abnormal [Unknown]
  - Haematocrit decreased [Unknown]
  - Jaundice [Unknown]
  - Blood iron abnormal [Unknown]
  - Red cell distribution width increased [Unknown]
  - Anion gap decreased [Unknown]
  - Cholelithiasis [Unknown]
  - Blood bilirubin increased [Unknown]
  - Liver function test abnormal [Unknown]
  - Bilirubin conjugated abnormal [Unknown]
  - Headache [Unknown]
  - Neutrophil count decreased [Unknown]
  - Blood lactate dehydrogenase increased [Recovered/Resolved]
  - Serum ferritin abnormal [Unknown]
  - Reticulocyte count increased [Unknown]
  - Haemoglobin decreased [Unknown]
  - Menorrhagia [Unknown]
  - Blood chloride increased [Unknown]
  - White blood cell count decreased [Unknown]
  - Mean cell haemoglobin concentration decreased [Unknown]
  - Red blood cell count decreased [Unknown]
  - Blood glucose increased [Unknown]

NARRATIVE: CASE EVENT DATE: 20100101
